FAERS Safety Report 11819548 (Version 2)
Quarter: 2016Q1

REPORT INFORMATION
  Report Type: Spontaneous
  Country: US (occurrence: US)
  Receive Date: 20151210
  Receipt Date: 20160106
  Transmission Date: 20160525
  Serious: No
  Sender: FDA-Public Use
  Company Number: US-JNJFOC-20151111619

PATIENT
  Age: 51 Year
  Sex: Male
  Weight: 111.13 kg

DRUGS (5)
  1. STELARA [Suspect]
     Active Substance: USTEKINUMAB
     Indication: PSORIASIS
     Route: 058
     Dates: start: 20151008
  2. ULOBETASOL PROPIONATE [Concomitant]
     Route: 065
  3. DOVONEX [Concomitant]
     Active Substance: CALCIPOTRIENE
     Indication: PSORIASIS
     Route: 061
     Dates: start: 201507, end: 201510
  4. ULTRAVATE [Concomitant]
     Active Substance: HALOBETASOL PROPIONATE
     Indication: PSORIASIS
     Route: 061
     Dates: start: 201507, end: 201510
  5. LEVOFLOXACIN. [Concomitant]
     Active Substance: LEVOFLOXACIN
     Route: 065

REACTIONS (3)
  - Furuncle [Recovered/Resolved]
  - Furuncle [Not Recovered/Not Resolved]
  - Dermal cyst [Recovering/Resolving]

NARRATIVE: CASE EVENT DATE: 201510
